FAERS Safety Report 4685582-7 (Version None)
Quarter: 2005Q2

REPORT INFORMATION
  Report Type: 
  Country: None (occurrence: None)
  Receive Date: 20050608
  Receipt Date: 20050323
  Transmission Date: 20051028
  Serious: Yes (Hospitalization)
  Sender: FDA-Public Use
  Company Number: ES-BRISTOL-MYERS SQUIBB COMPANY-12908166

PATIENT
  Age: 46 Year
  Sex: Female

DRUGS (10)
  1. ABATACEPT [Suspect]
     Indication: RHEUMATOID ARTHRITIS
     Route: 042
     Dates: start: 20040302
  2. METHOTREXATE [Suspect]
     Route: 058
     Dates: start: 20030702, end: 20050309
  3. NAPROXEN [Suspect]
     Route: 048
     Dates: start: 20021129, end: 20050323
  4. METHYLPREDNISOLONE [Concomitant]
     Route: 048
     Dates: start: 20010126
  5. FOLIC ACID [Concomitant]
     Route: 048
     Dates: start: 20021129, end: 20050323
  6. ALENDRONATE [Concomitant]
     Route: 048
     Dates: start: 20021129, end: 20050323
  7. CALCIUM + VITAMIN D [Concomitant]
     Route: 048
     Dates: start: 20021129, end: 20050323
  8. LANSOPRAZOLE [Concomitant]
     Route: 048
     Dates: start: 20030702
  9. AMLODIPINE [Concomitant]
     Route: 048
     Dates: start: 20031111, end: 20050323
  10. VALIUM [Concomitant]
     Dates: end: 20050323

REACTIONS (6)
  - ANTINUCLEAR ANTIBODY POSITIVE [None]
  - AUTOIMMUNE HEPATITIS [None]
  - CREPITATIONS [None]
  - CYTOMEGALOVIRUS TEST POSITIVE [None]
  - HEPATOMEGALY [None]
  - HERPES SIMPLEX [None]
